FAERS Safety Report 4501879-5 (Version None)
Quarter: 2004Q4

REPORT INFORMATION
  Report Type: 
  Country: None (occurrence: None)
  Receive Date: 20041116
  Receipt Date: 20041101
  Transmission Date: 20050328
  Serious: Yes (Death, Other)
  Sender: FDA-Public Use
  Company Number: 200421042GDDC

PATIENT
  Age: 60 Year
  Sex: Male
  Weight: 90 kg

DRUGS (1)
  1. ARAVA [Suspect]
     Indication: RHEUMATOID ARTHRITIS
     Route: 048
     Dates: start: 20040101, end: 20041001

REACTIONS (17)
  - ACUTE RESPIRATORY DISTRESS SYNDROME [None]
  - ACUTE RESPIRATORY FAILURE [None]
  - ANXIETY [None]
  - ATELECTASIS [None]
  - BRONCHIAL CARCINOMA [None]
  - COAGULATION TEST ABNORMAL [None]
  - DEHYDRATION [None]
  - GASTROINTESTINAL DISORDER [None]
  - HEPATIC FAILURE [None]
  - HEPATITIS INFECTIOUS [None]
  - HEPATITIS TOXIC [None]
  - HEPATORENAL SYNDROME [None]
  - JUGULAR VEIN DISTENSION [None]
  - MULTI-ORGAN FAILURE [None]
  - SENSE OF OPPRESSION [None]
  - SHOCK [None]
  - TACHYCARDIA [None]
